FAERS Safety Report 9997702 (Version 1)
Quarter: 2014Q1

REPORT INFORMATION
  Report Type: Spontaneous
  Country: US (occurrence: US)
  Receive Date: 20140311
  Receipt Date: 20140311
  Transmission Date: 20141002
  Serious: No
  Sender: FDA-Public Use
  Company Number: US-PFIZER INC-2014065601

PATIENT
  Sex: 0

DRUGS (1)
  1. ADVIL [Suspect]
     Dosage: 400 MG (TOOK ONLY ONE), UNK

REACTIONS (2)
  - Euphoric mood [Unknown]
  - Gastrointestinal disorder [Unknown]
